FAERS Safety Report 12554651 (Version 2)
Quarter: 2017Q1

REPORT INFORMATION
  Report Type: Spontaneous
  Country: TR (occurrence: TR)
  Receive Date: 20160713
  Receipt Date: 20170124
  Transmission Date: 20170428
  Serious: Yes (Hospitalization, Other)
  Sender: FDA-Public Use
  Company Number: TR-FRI-1000086063

PATIENT
  Age: 29 Year
  Sex: Female

DRUGS (4)
  1. ESCITALOPRAM OXALATE - BP [Interacting]
     Active Substance: ESCITALOPRAM OXALATE
     Indication: SUICIDE ATTEMPT
     Dosage: 20 MG, QD
     Route: 048
  2. MOCLOBEMIDE [Interacting]
     Active Substance: MOCLOBEMIDE
     Indication: INTENTIONAL OVERDOSE
     Dosage: 6000 MG, SINGLE
     Route: 065
  3. MOCLOBEMIDE [Interacting]
     Active Substance: MOCLOBEMIDE
     Indication: SUICIDE ATTEMPT
     Dosage: 300 MG, QD
  4. ESCITALOPRAM OXALATE - BP [Suspect]
     Active Substance: ESCITALOPRAM OXALATE
     Indication: INTENTIONAL OVERDOSE
     Dosage: 1400 MG, SINGLE
     Route: 048

REACTIONS (4)
  - Drug interaction [Unknown]
  - Suicide attempt [Recovered/Resolved]
  - Intentional overdose [Unknown]
  - Serotonin syndrome [Unknown]
